FAERS Safety Report 7960900-2 (Version None)
Quarter: 2011Q4

REPORT INFORMATION
  Report Type: 
  Country: None (occurrence: None)
  Receive Date: 20111201
  Receipt Date: 20111123
  Transmission Date: 20120403
  Serious: Yes (Other)
  Sender: FDA-Public Use
  Company Number: DKLU1075031

PATIENT
  Age: 11 Year
  Sex: Female

DRUGS (3)
  1. TEGRETOL [Concomitant]
  2. SABRIL [Suspect]
     Indication: GENERALISED NON-CONVULSIVE EPILEPSY
     Dosage: 500 MG MILLIGRAM(S), 2 IN 1 D, ORAL
     Route: 048
     Dates: start: 20111111, end: 20111115
  3. TOPAMAX [Concomitant]

REACTIONS (5)
  - FEAR [None]
  - INSOMNIA [None]
  - ABNORMAL BEHAVIOUR [None]
  - CONVULSION [None]
  - INTENTIONAL SELF-INJURY [None]
